FAERS Safety Report 22361149 (Version 5)
Quarter: 2024Q2

REPORT INFORMATION
  Report Type: Spontaneous
  Country: US (occurrence: US)
  Receive Date: 20230524
  Receipt Date: 20240613
  Transmission Date: 20240716
  Serious: Yes (Hospitalization)
  Sender: FDA-Public Use
  Company Number: US-PFIZER INC-US-GBT-021115

PATIENT
  Age: 44 Year
  Sex: Male

DRUGS (4)
  1. OXBRYTA [Suspect]
     Active Substance: VOXELOTOR
     Indication: Sickle cell disease
     Dosage: 1500 MG, 1X/DAY
     Route: 048
     Dates: start: 201912
  2. OXBRYTA [Suspect]
     Active Substance: VOXELOTOR
     Dosage: 500MG 3 TABLETS ONCE DAILY
     Route: 048
     Dates: start: 202001
  3. JADENU [Concomitant]
     Active Substance: DEFERASIROX
     Dosage: 3 DF, ALTERNATE DAY (ON ODD DAYS)
     Route: 048
  4. JADENU [Concomitant]
     Active Substance: DEFERASIROX
     Dosage: 4 DF, ALTERNATE DAY (EVEN DAYS)
     Route: 048

REACTIONS (8)
  - Sickle cell anaemia with crisis [Unknown]
  - Diarrhoea [Not Recovered/Not Resolved]
  - Anxiety [Unknown]
  - Weight decreased [Unknown]
  - Gastric infection [Unknown]
  - Headache [Not Recovered/Not Resolved]
  - Anger [Unknown]
  - Selective mutism [Unknown]
